FAERS Safety Report 5248337-0 (Version None)
Quarter: 2007Q1

REPORT INFORMATION
  Report Type: 
  Country: None (occurrence: None)
  Receive Date: 20070227
  Receipt Date: 20070216
  Transmission Date: 20070707
  Serious: Yes (Hospitalization)
  Sender: FDA-Public Use
  Company Number: CA-BOEHRINGER INGELHEIM GMBH, GERMANY-2007-CN-00110CN

PATIENT
  Sex: Female

DRUGS (2)
  1. MICARDIS HCT [Suspect]
     Dates: start: 20060315
  2. ADALAT [Concomitant]

REACTIONS (5)
  - GASTROENTERITIS [None]
  - INFLUENZA [None]
  - RIB FRACTURE [None]
  - SYNCOPE [None]
  - VOMITING [None]
